FAERS Safety Report 4865447-8 (Version None)
Quarter: 2005Q4

REPORT INFORMATION
  Report Type: 
  Country: None (occurrence: None)
  Receive Date: 20051223
  Receipt Date: 20051124
  Transmission Date: 20060501
  Serious: Yes (Life-Threatening)
  Sender: FDA-Public Use
  Company Number: JP-ROCHE-426370

PATIENT
  Age: 14 Year
  Sex: Female
  Weight: 47 kg

DRUGS (9)
  1. TAMIFLU [Suspect]
     Dosage: PATIENT TOOK THE DRUG IN THE EVENING
     Route: 048
     Dates: start: 20050228, end: 20050228
  2. TAMIFLU [Suspect]
     Route: 048
     Dates: start: 20050301, end: 20050301
  3. CLARITHROMYCIN [Concomitant]
     Indication: ADENOIDITIS
     Dosage: PATIENT TOOK THE DRUG IN THE EVENING
     Route: 048
     Dates: start: 20050228, end: 20050301
  4. ASVERIN [Concomitant]
     Route: 048
     Dates: start: 20050228, end: 20050301
  5. AZULENE [Concomitant]
     Dosage: REPORTED AS HACHIAZULE DOSE FORM = GARGLE, ROUTE = OROPHARINGEAL
     Route: 050
     Dates: start: 20050228
  6. UNSPECIFIED DRUG [Concomitant]
     Dosage: DRUG REPORTED AS TROCHES FORM = LOZENGE ROUTE = OROPHARINGEAL
     Route: 050
  7. CALONAL [Concomitant]
     Route: 048
     Dates: start: 20050228
  8. PL [Concomitant]
     Route: 048
     Dates: start: 20050228, end: 20050301
  9. DEQUALINIUM CHLORIDE [Concomitant]
     Dosage: DRUG NAME REPORTED AS 'SP (DEQUALINIUM CHLORIDE)  ROUTE: OROPHARINGEAL
     Route: 050
     Dates: start: 20050228

REACTIONS (5)
  - ABNORMAL BEHAVIOUR [None]
  - DELIRIUM [None]
  - HALLUCINATION [None]
  - PARANOIA [None]
  - SUICIDE ATTEMPT [None]
